FAERS Safety Report 10936267 (Version 1)
Quarter: 2015Q1

REPORT INFORMATION
  Report Type: Spontaneous
  Country: US (occurrence: None)
  Receive Date: 20150319
  Receipt Date: 20150319
  Transmission Date: 20150721
  Serious: Yes (Other)
  Sender: FDA-Public Use
  Company Number: None

PATIENT
  Sex: Female
  Weight: 71.67 kg

DRUGS (5)
  1. VALSARTAN 160MG [Suspect]
     Active Substance: VALSARTAN
     Indication: HYPERTENSION
     Dosage: TOOK IT 2-3 TIMES
     Route: 048
     Dates: start: 2014
  2. VALSARTAN 160MG [Suspect]
     Active Substance: VALSARTAN
     Indication: DIABETES MELLITUS
     Dosage: TOOK IT 2-3 TIMES
     Route: 048
     Dates: start: 2014
  3. LIPITOR [Concomitant]
     Active Substance: ATORVASTATIN CALCIUM
  4. HCTZ [Concomitant]
     Active Substance: HYDROCHLOROTHIAZIDE
  5. LANTUS [Concomitant]
     Active Substance: INSULIN GLARGINE

REACTIONS (3)
  - Urticaria [None]
  - Rash [None]
  - Blister [None]

NARRATIVE: CASE EVENT DATE: 2014
